FAERS Safety Report 6558810-0 (Version None)
Quarter: 2010Q1

REPORT INFORMATION
  Report Type: 
  Country: None (occurrence: None)
  Receive Date: 20100129
  Receipt Date: 20100120
  Transmission Date: 20100710
  Serious: Yes (Other)
  Sender: FDA-Public Use
  Company Number: PHHY2010DE03572

PATIENT
  Sex: Female

DRUGS (1)
  1. RASILEZ [Suspect]
     Dosage: 300 MG PER DAY
     Route: 048
     Dates: start: 20091124, end: 20091216

REACTIONS (5)
  - BLOOD PRESSURE FLUCTUATION [None]
  - GENERAL PHYSICAL CONDITION ABNORMAL [None]
  - HYPERSENSITIVITY [None]
  - PERIPHERAL VASCULAR DISORDER [None]
  - RASH [None]
